FAERS Safety Report 25758996 (Version 2)
Quarter: 2025Q3

REPORT INFORMATION
  Report Type: Report from Study
  Country: US (occurrence: US)
  Receive Date: 20250904
  Receipt Date: 20250912
  Transmission Date: 20251020
  Serious: Yes (Other)
  Sender: UCB
  Company Number: US-UCBSA-2025050698

PATIENT
  Age: 40 Year
  Sex: Female
  Weight: 151 kg

DRUGS (1)
  1. FINTEPLA [Suspect]
     Active Substance: FENFLURAMINE
     Indication: Product used for unknown indication
     Dates: start: 20250429

REACTIONS (3)
  - Left atrial dilatation [Not Recovered/Not Resolved]
  - Right atrial dilatation [Not Recovered/Not Resolved]
  - Inferior vena cava dilatation [Not Recovered/Not Resolved]

NARRATIVE: CASE EVENT DATE: 20250805
